FAERS Safety Report 6864474-9 (Version None)
Quarter: 2010Q3

REPORT INFORMATION
  Report Type: 
  Country: None (occurrence: None)
  Receive Date: 20100721
  Receipt Date: 20080326
  Transmission Date: 20110219
  Serious: Yes (Other)
  Sender: FDA-Public Use
  Company Number: US-PFIZER INC-2008028098

PATIENT
  Sex: Female
  Weight: 60.454 kg

DRUGS (8)
  1. CHANTIX [Suspect]
     Indication: SMOKING CESSATION THERAPY
     Dates: start: 20080217
  2. I.V. SOLUTIONS [Concomitant]
  3. PREDNISONE [Concomitant]
  4. ROCEPHIN [Concomitant]
     Route: 042
  5. LUNESTA [Concomitant]
  6. MOTRIN [Concomitant]
  7. TYLENOL [Concomitant]
  8. ERYTHROMYCIN [Concomitant]

REACTIONS (3)
  - DISCOMFORT [None]
  - OEDEMA [None]
  - WEIGHT INCREASED [None]
